FAERS Safety Report 5381920-0 (Version None)
Quarter: 2007Q3

REPORT INFORMATION
  Report Type: 
  Country: None (occurrence: None)
  Receive Date: 20070709
  Receipt Date: 20070704
  Transmission Date: 20080115
  Serious: Yes (Hospitalization)
  Sender: FDA-Public Use
  Company Number: GRWYE980406JUL07

PATIENT
  Age: 56 Year
  Sex: Female
  Weight: 50 kg

DRUGS (8)
  1. TYGACIL [Suspect]
     Indication: INFECTION
     Route: 042
     Dates: start: 20070525, end: 20070603
  2. ONE-ALPHA [Concomitant]
  3. SALOSPIR [Concomitant]
  4. PREZOLON [Concomitant]
  5. FLAGYL [Concomitant]
  6. CIPROFLOXACIN [Concomitant]
  7. CALCIUM CARBONATE [Concomitant]
  8. LOSEC [Concomitant]

REACTIONS (1)
  - HEPATITIS CHOLESTATIC [None]
